FAERS Safety Report 4995024-X (Version None)
Quarter: 2006Q2

REPORT INFORMATION
  Report Type: 
  Country: None (occurrence: None)
  Receive Date: 20060508
  Receipt Date: 20060314
  Transmission Date: 20061013
  Serious: Yes (Other)
  Sender: FDA-Public Use
  Company Number: AU-GLAXOSMITHKLINE-B0416482A

PATIENT
  Age: 80 Year
  Sex: Male

DRUGS (14)
  1. VALTREX [Suspect]
     Indication: HERPES ZOSTER
     Dosage: 1G PER DAY
     Route: 048
     Dates: start: 20050919, end: 20050921
  2. ALUMINUM HYDROXIDE GEL [Concomitant]
     Dosage: 2TAB THREE TIMES PER DAY
     Route: 048
  3. DALTEPARIN SODIUM [Concomitant]
     Route: 042
  4. EPOGEN [Concomitant]
     Dosage: 4000UNIT TWO TIMES PER WEEK
     Route: 042
  5. FOLIC ACID [Concomitant]
     Dosage: .5MG PER DAY
     Route: 048
  6. ISOSORBIDE MONONITRATE [Concomitant]
     Dosage: 60MG IN THE MORNING
     Route: 048
  7. LASONIL [Concomitant]
     Dosage: 1U AS REQUIRED
     Route: 061
  8. LORATADINE [Concomitant]
     Dosage: 10MG AT NIGHT
     Route: 048
  9. METSAL [Concomitant]
     Dosage: 1ML AS REQUIRED
     Route: 061
  10. NITRAZEPAM [Concomitant]
     Dosage: 5MG AS REQUIRED
     Route: 048
  11. RANITIDINE [Concomitant]
     Dosage: 150MG AT NIGHT
     Route: 048
  12. SENOKOT [Concomitant]
     Dosage: 1TAB ALTERNATE DAYS
     Route: 048
  13. SORBOLENE [Concomitant]
     Dosage: 1U AS REQUIRED
     Route: 061
  14. SUPER B [Concomitant]
     Dosage: 1TAB THREE TIMES PER WEEK
     Route: 048

REACTIONS (7)
  - CONFUSIONAL STATE [None]
  - COORDINATION ABNORMAL [None]
  - DYSARTHRIA [None]
  - HALLUCINATION, VISUAL [None]
  - NEUROTOXICITY [None]
  - NYSTAGMUS [None]
  - PHOTOSENSITIVITY REACTION [None]
